FAERS Safety Report 11098178 (Version 1)
Quarter: 2015Q2

REPORT INFORMATION
  Report Type: Spontaneous
  Country: GB (occurrence: GB)
  Receive Date: 20150507
  Receipt Date: 20150507
  Transmission Date: 20150821
  Serious: Yes (Other)
  Sender: FDA-Public Use
  Company Number: GB-JNJFOC-20150421760

PATIENT
  Age: 12 Year
  Sex: Male
  Weight: 45 kg

DRUGS (1)
  1. TOPAMAX [Suspect]
     Active Substance: TOPIRAMATE
     Indication: EPILEPSY
     Dosage: 50MG/DAY STARTER DOSE TO 100MG/DAY THEN BACK DOWN
     Route: 048
     Dates: start: 20150219, end: 20150319

REACTIONS (11)
  - Abnormal weight gain [Unknown]
  - Reading disorder [Unknown]
  - Dizziness [Recovered/Resolved]
  - Mental impairment [Unknown]
  - Fatigue [Unknown]
  - Aphasia [Recovered/Resolved]
  - Fatigue [Recovered/Resolved]
  - Cognitive disorder [Recovered/Resolved]
  - Memory impairment [Recovered/Resolved]
  - Disturbance in attention [Recovered/Resolved]
  - Eye movement disorder [Unknown]

NARRATIVE: CASE EVENT DATE: 20150222
